FAERS Safety Report 7324738-1 (Version None)
Quarter: 2011Q1

REPORT INFORMATION
  Report Type: 
  Country: None (occurrence: None)
  Receive Date: 20110301
  Receipt Date: 20101116
  Transmission Date: 20110831
  Serious: Yes (Death, Other)
  Sender: FDA-Public Use
  Company Number: GB-CELGENEUS-167-FK228-10111998

PATIENT

DRUGS (1)
  1. ROMIDEPSIN [Suspect]
     Dosage: 14 MILLIGRAM/SQ. METER
     Route: 051

REACTIONS (30)
  - CARDIOPULMONARY FAILURE [None]
  - DISEASE PROGRESSION [None]
  - OROPHARYNGEAL CANDIDIASIS [None]
  - CARDIAC FAILURE [None]
  - DRUG ERUPTION [None]
  - TUMOUR LYSIS SYNDROME [None]
  - ANAEMIA [None]
  - THROMBOCYTOPENIA [None]
  - URINE OUTPUT DECREASED [None]
  - PYREXIA [None]
  - HYPERGLYCAEMIA [None]
  - HYPOTENSION [None]
  - RENAL FAILURE ACUTE [None]
  - ELECTROCARDIOGRAM ST SEGMENT DEPRESSION [None]
  - BRADYARRHYTHMIA [None]
  - PHARYNGITIS [None]
  - ASTHENIA [None]
  - VOMITING [None]
  - HEADACHE [None]
  - ELECTROCARDIOGRAM QT PROLONGED [None]
  - SEPSIS [None]
  - NAUSEA [None]
  - AGEUSIA [None]
  - LEUKOCYTOSIS [None]
  - DYSPNOEA [None]
  - SYNCOPE [None]
  - ORAL CANDIDIASIS [None]
  - DECREASED APPETITE [None]
  - DYSGEUSIA [None]
  - DIARRHOEA [None]
